FAERS Safety Report 9672030 (Version 2)
Quarter: 2014Q1

REPORT INFORMATION
  Report Type: Spontaneous
  Country: GB (occurrence: None)
  Receive Date: 20131104
  Receipt Date: 20140207
  Transmission Date: 20141002
  Serious: Yes (Other)
  Sender: FDA-Public Use
  Company Number: AUR-APL-2013-08963

PATIENT
  Age: 24 Year
  Sex: Female
  Weight: 62.13 kg

DRUGS (4)
  1. SERTRALINE (SERTRALINE) [Suspect]
     Indication: ANXIETY
     Route: 048
     Dates: start: 20130926, end: 20131020
  2. SERTRALINE (SERTRALINE) [Suspect]
     Indication: BULIMIA NERVOSA
     Route: 048
     Dates: start: 20130926, end: 20131020
  3. SERTRALINE (SERTRALINE) [Suspect]
     Indication: DEPRESSION
     Route: 048
     Dates: start: 20130926, end: 20131020
  4. MIRENA (LEVONORGESTREL) [Concomitant]

REACTIONS (1)
  - Anorgasmia [None]
